FAERS Safety Report 6517964-2 (Version None)
Quarter: 2009Q4

REPORT INFORMATION
  Report Type: 
  Country: None (occurrence: None)
  Receive Date: 20091224
  Receipt Date: 20091214
  Transmission Date: 20100525
  Serious: Yes (Hospitalization, Other)
  Sender: FDA-Public Use
  Company Number: US-JNJFOC-20090901230

PATIENT
  Sex: Male
  Weight: 77.11 kg

DRUGS (4)
  1. NUCYNTA [Suspect]
     Indication: COMPLEX REGIONAL PAIN SYNDROME
     Route: 048
  2. NUCYNTA [Suspect]
     Dosage: 4-6 HOURS
     Route: 048
  3. NUCYNTA [Suspect]
     Route: 048
  4. AVINZA [Concomitant]
     Indication: COMPLEX REGIONAL PAIN SYNDROME
     Route: 065

REACTIONS (2)
  - DELUSION [None]
  - HALLUCINATION [None]
